FAERS Safety Report 20832106 (Version 4)
Quarter: 2022Q2

REPORT INFORMATION
  Report Type: Spontaneous
  Country: BE (occurrence: BE)
  Receive Date: 20220516
  Receipt Date: 20220610
  Transmission Date: 20220720
  Serious: Yes (Other)
  Sender: FDA-Public Use
  Company Number: BE-PFM-2022-04132

PATIENT

DRUGS (8)
  1. NERLYNX [Suspect]
     Active Substance: NERATINIB
     Indication: Breast cancer
     Dosage: 120 MG/ DAY
     Route: 048
     Dates: start: 20220321, end: 20220327
  2. NERLYNX [Suspect]
     Active Substance: NERATINIB
     Dosage: 160 MG/ DAY
     Route: 048
     Dates: start: 20220328, end: 20220401
  3. NERLYNX [Suspect]
     Active Substance: NERATINIB
     Dosage: 120 MG/ DAY
     Route: 048
     Dates: start: 20220411, end: 20220418
  4. NERLYNX [Suspect]
     Active Substance: NERATINIB
     Dosage: 160 MG/ DAY
     Route: 048
     Dates: start: 20220419
  5. NERLYNX [Suspect]
     Active Substance: NERATINIB
     Dosage: 160 MG, QD (1/DAY)
     Route: 048
     Dates: start: 20220426
  6. FEMARA [Concomitant]
     Active Substance: LETROZOLE
     Indication: Breast cancer
     Dosage: UNK
     Route: 065
     Dates: start: 20220215
  7. XGEVA [Concomitant]
     Active Substance: DENOSUMAB
     Indication: Metastases to bone
     Dosage: UNK
     Route: 065
     Dates: start: 20220215
  8. HERCEPTIN [Concomitant]
     Active Substance: TRASTUZUMAB
     Indication: Breast cancer
     Dosage: UNK
     Route: 058
     Dates: start: 20220425

REACTIONS (6)
  - Neutropenia [Recovered/Resolved]
  - Fatigue [Not Recovered/Not Resolved]
  - Diarrhoea [Recovered/Resolved]
  - Nausea [Recovered/Resolved]
  - Prescribed underdose [Unknown]
  - Off label use [Unknown]

NARRATIVE: CASE EVENT DATE: 20220321
